FAERS Safety Report 4801565-8 (Version None)
Quarter: 2005Q4

REPORT INFORMATION
  Report Type: 
  Country: None (occurrence: None)
  Receive Date: 20051012
  Receipt Date: 20051003
  Transmission Date: 20060501
  Serious: Yes (Other)
  Sender: FDA-Public Use
  Company Number: 12517

PATIENT
  Age: 54 Year
  Sex: Female

DRUGS (4)
  1. METHOTREXATE [Suspect]
     Indication: RHEUMATOID ARTHRITIS
     Dosage: 15 MG WEEKLY SC
     Route: 058
     Dates: start: 20050325, end: 20050805
  2. ACETAMINOPHEN [Concomitant]
  3. RANITIDINE [Concomitant]
  4. ETODOLAC [Concomitant]

REACTIONS (2)
  - DEPRESSION [None]
  - HEADACHE [None]
